FAERS Safety Report 7489632-4 (Version None)
Quarter: 2011Q2

REPORT INFORMATION
  Report Type: 
  Country: None (occurrence: None)
  Receive Date: 20110519
  Receipt Date: 20110510
  Transmission Date: 20111010
  Serious: No
  Sender: FDA-Public Use
  Company Number: US-BIOGENIDEC-2010BI042119

PATIENT
  Age: 42 Year
  Sex: Female

DRUGS (1)
  1. TYSABRI [Suspect]
     Indication: MULTIPLE SCLEROSIS
     Route: 042
     Dates: start: 20100118

REACTIONS (5)
  - STAPHYLOCOCCAL INFECTION [None]
  - SINUSITIS [None]
  - SINUS OPERATION [None]
  - IMPAIRED HEALING [None]
  - NASAL OPERATION [None]
